FAERS Safety Report 26146285 (Version 1)
Quarter: 2025Q4

REPORT INFORMATION
  Report Type: Spontaneous
  Country: US (occurrence: None)
  Receive Date: 20251211
  Receipt Date: 20251211
  Transmission Date: 20260118
  Serious: No
  Sender: FDA-CTU
  Company Number: None

PATIENT
  Age: 69 Year
  Sex: Male
  Weight: 62.6 kg

DRUGS (2)
  1. TREMFYA [Suspect]
     Active Substance: GUSELKUMAB
     Indication: Psoriatic arthropathy
     Dosage: OTHER FREQUENCY : WK0ANDWK4ASDIRECTED;
     Route: 058
     Dates: start: 202405
  2. TREMFYA [Suspect]
     Active Substance: GUSELKUMAB
     Indication: Polyarthritis

REACTIONS (1)
  - Nerve compression [None]
